FAERS Safety Report 25909644 (Version 1)
Quarter: 2025Q4

REPORT INFORMATION
  Report Type: Spontaneous
  Country: US (occurrence: US)
  Receive Date: 20251011
  Receipt Date: 20251011
  Transmission Date: 20260117
  Serious: Yes (Other)
  Sender: JOHNSON AND JOHNSON
  Company Number: US-JNJFOC-20251011166

PATIENT
  Age: 44 Year
  Sex: Male

DRUGS (4)
  1. SPRAVATO [Suspect]
     Active Substance: ESKETAMINE
     Indication: Product used for unknown indication
     Route: 045
     Dates: start: 20250924, end: 20250924
  2. SPRAVATO [Suspect]
     Active Substance: ESKETAMINE
     Route: 045
     Dates: start: 20250903, end: 20250903
  3. SPRAVATO [Suspect]
     Active Substance: ESKETAMINE
     Route: 045
     Dates: start: 20250827, end: 20250827
  4. SPRAVATO [Suspect]
     Active Substance: ESKETAMINE
     Route: 045
     Dates: start: 20250820, end: 20250820

REACTIONS (14)
  - Hallucination, visual [Recovered/Resolved]
  - Blood pressure increased [Recovered/Resolved]
  - Palpitations [Recovered/Resolved]
  - Pallor [Recovered/Resolved]
  - Dissociation [Recovered/Resolved]
  - Paraesthesia [Recovered/Resolved]
  - Sedation [Recovered/Resolved]
  - Fatigue [Recovered/Resolved]
  - Dizziness [Recovered/Resolved]
  - Hypoaesthesia [Recovered/Resolved]
  - Hyperhidrosis [Recovered/Resolved]
  - Headache [Recovered/Resolved]
  - Vision blurred [Recovered/Resolved]
  - Dysarthria [Recovered/Resolved]

NARRATIVE: CASE EVENT DATE: 20250820
